FAERS Safety Report 15978416 (Version 1)
Quarter: 2019Q1

REPORT INFORMATION
  Report Type: Spontaneous
  Country: US (occurrence: US)
  Receive Date: 20190219
  Receipt Date: 20190219
  Transmission Date: 20190418
  Serious: No
  Sender: FDA-Public Use
  Company Number: US-TEVA-2019-US-1013733

PATIENT

DRUGS (1)
  1. TRAMADOL TEVA [Suspect]
     Active Substance: TRAMADOL
     Indication: FIBROMYALGIA
     Route: 065

REACTIONS (1)
  - Pruritus [Unknown]
